FAERS Safety Report 13452343 (Version 1)
Quarter: 2017Q2

REPORT INFORMATION
  Report Type: Spontaneous
  Country: US (occurrence: US)
  Receive Date: 20170418
  Receipt Date: 20170418
  Transmission Date: 20170830
  Serious: Yes (Disabling, Other)
  Sender: FDA-Public Use
  Company Number: US-AMGEN-USASP2017037619

PATIENT
  Age: 58 Year
  Sex: Female
  Weight: 58.5 kg

DRUGS (8)
  1. REPATHA [Suspect]
     Active Substance: EVOLOCUMAB
     Indication: HYPERCHOLESTEROLAEMIA
     Dosage: 140 MG/ML, Q2WK
     Route: 058
     Dates: start: 20161206, end: 20161207
  2. ISOSORBIDE. [Concomitant]
     Active Substance: ISOSORBIDE
     Indication: CORONARY ARTERY DISEASE
     Dosage: 60 MG, QD
     Route: 048
     Dates: start: 20120227
  3. METOPROLOL TARTRATE. [Concomitant]
     Active Substance: METOPROLOL TARTRATE
     Indication: CORONARY ARTERY DISEASE
     Dosage: 25 MG, BID
     Route: 048
     Dates: start: 20121009
  4. LISINOPRIL. [Concomitant]
     Active Substance: LISINOPRIL
     Indication: CORONARY ARTERY DISEASE
     Dosage: 40 MG, QD
     Route: 048
     Dates: start: 20110905
  5. MULTIVITAMIN [Concomitant]
     Active Substance: VITAMINS
     Dosage: QD (1 TABLET)
     Route: 048
  6. PLAVIX [Concomitant]
     Active Substance: CLOPIDOGREL BISULFATE
     Indication: CORONARY ARTERY DISEASE
     Dosage: 75 MG, QD
     Dates: start: 20111209
  7. MONTELUKAST [Concomitant]
     Active Substance: MONTELUKAST SODIUM
     Dosage: 10 MG, QD
     Route: 048
     Dates: start: 201508
  8. ASPIRIN. [Concomitant]
     Active Substance: ASPIRIN
     Indication: CORONARY ARTERY DISEASE
     Dosage: 81 MG, QD
     Route: 048
     Dates: start: 20111208

REACTIONS (8)
  - Hypotension [Recovered/Resolved]
  - Myalgia [Unknown]
  - Abdominal pain [Recovered/Resolved]
  - Asthenia [Unknown]
  - Chills [Unknown]
  - Diarrhoea [Recovered/Resolved]
  - Pain [Recovered/Resolved]
  - Nausea [Recovered/Resolved]

NARRATIVE: CASE EVENT DATE: 20161207
